FAERS Safety Report 7914193-2 (Version None)
Quarter: 2011Q4

REPORT INFORMATION
  Report Type: 
  Country: None (occurrence: None)
  Receive Date: 20111115
  Receipt Date: 20111115
  Transmission Date: 20120403
  Serious: Yes (Life-Threatening, Other)
  Sender: FDA-Public Use
  Company Number: None

PATIENT
  Age: 63 Year
  Sex: Female
  Weight: 58.967 kg

DRUGS (1)
  1. CEPHALEXIN [Suspect]
     Indication: EAR INFECTION BACTERIAL
     Dates: start: 20111104, end: 20111104

REACTIONS (10)
  - DIZZINESS [None]
  - DIARRHOEA [None]
  - PRURITUS [None]
  - FALL [None]
  - DYSSTASIA [None]
  - VOMITING [None]
  - BALANCE DISORDER [None]
  - SCAB [None]
  - COLD SWEAT [None]
  - CONTUSION [None]
